FAERS Safety Report 5373422-2 (Version None)
Quarter: 2007Q2

REPORT INFORMATION
  Report Type: 
  Country: None (occurrence: None)
  Receive Date: 20070628
  Receipt Date: 20070622
  Transmission Date: 20071010
  Serious: Yes (Other)
  Sender: FDA-Public Use
  Company Number: US-ASTRAZENECA-2007UW15047

PATIENT
  Age: 46 Year
  Sex: Female
  Weight: 56.7 kg

DRUGS (4)
  1. SEROQUEL [Suspect]
     Indication: INSOMNIA
     Dosage: 3 TABLETS
     Route: 048
  2. SEROQUEL [Suspect]
     Indication: NERVOUSNESS
     Dosage: 3 TABLETS
     Route: 048
  3. KLONOPIN [Suspect]
     Dosage: 12 TABLETS
  4. EFFEXOR [Concomitant]

REACTIONS (2)
  - INTENTIONAL OVERDOSE [None]
  - PSYCHOTIC DISORDER [None]
